FAERS Safety Report 8062909-X (Version None)
Quarter: 2012Q1

REPORT INFORMATION
  Report Type: 
  Country: None (occurrence: None)
  Receive Date: 20120123
  Receipt Date: 20120123
  Transmission Date: 20120608
  Serious: Yes (Other)
  Sender: FDA-Public Use
  Company Number: None

PATIENT
  Age: 30 Year
  Sex: Female
  Weight: 87.543 kg

DRUGS (1)
  1. CHORIONIC GONADOTROPIN [Suspect]
     Indication: OBESITY
     Dosage: 8-10 DROPS
     Route: 060
     Dates: start: 20101012, end: 20101201

REACTIONS (5)
  - ALOPECIA [None]
  - CONSTIPATION [None]
  - IMMUNE SYSTEM DISORDER [None]
  - MUSCLE ATROPHY [None]
  - METABOLIC DISORDER [None]
